FAERS Safety Report 5519698-X (Version None)
Quarter: 2007Q4

REPORT INFORMATION
  Report Type: 
  Country: None (occurrence: None)
  Receive Date: 20071116
  Receipt Date: 20071106
  Transmission Date: 20080405
  Serious: Yes (Hospitalization)
  Sender: FDA-Public Use
  Company Number: FR-JNJFOC-20071105296

PATIENT
  Sex: Female

DRUGS (10)
  1. TRAMADOL HCL [Suspect]
     Indication: PAIN IN EXTREMITY
     Route: 048
  2. LASIX [Suspect]
     Indication: HYPERTENSION
     Route: 048
  3. DI-ANTALVIC [Suspect]
     Indication: PAIN IN EXTREMITY
     Route: 048
  4. COZAAR [Suspect]
     Indication: HYPERTENSION
     Route: 048
  5. DIAMICRON [Suspect]
     Indication: TYPE 2 DIABETES MELLITUS
     Route: 048
  6. DIGOXIN [Suspect]
     Indication: ARRHYTHMIA
     Route: 065
  7. CORDARONE [Suspect]
     Indication: ARRHYTHMIA
     Route: 048
  8. MINISINTROM [Suspect]
     Indication: ARRHYTHMIA
     Route: 048
  9. NICARDIPINE HCL [Suspect]
     Indication: HYPERTENSION
     Route: 042
  10. PROZAC [Suspect]
     Indication: DRUG USE FOR UNKNOWN INDICATION
     Route: 048

REACTIONS (1)
  - HYPONATRAEMIA [None]
